FAERS Safety Report 9517040 (Version 1)
Quarter: 2013Q1

REPORT INFORMATION
  Report Type: Spontaneous
  Country: US (occurrence: None)
  Receive Date: 20130305
  Receipt Date: 20130305
  Transmission Date: 20140127
  Serious: Yes (Disabling)
  Sender: FDA-Public Use
  Company Number: 163-21880-11122695

PATIENT
  Age: 74 Year
  Sex: Male
  Weight: 97.52 kg

DRUGS (6)
  1. REVLIMID [Suspect]
     Indication: PLASMA CELL MYELOMA
     Route: 048
     Dates: start: 20111205, end: 20111221
  2. VELCADE (BORTEZOMIB) [Concomitant]
  3. DEXAMETHASONE [Concomitant]
  4. NADOLOL [Concomitant]
  5. COZAAR (LOSARTAN POTASSIUM) [Concomitant]
  6. WARFARIN [Concomitant]

REACTIONS (4)
  - Rash maculo-papular [None]
  - Pruritus [None]
  - Pain [None]
  - Fatigue [None]
